FAERS Safety Report 9001264 (Version 2)
Quarter: 2013Q2

REPORT INFORMATION
  Report Type: Spontaneous
  Country: FR (occurrence: FR)
  Receive Date: 20130107
  Receipt Date: 20130415
  Transmission Date: 20140414
  Serious: Yes (Life-Threatening)
  Sender: FDA-Public Use
  Company Number: FR-ASTRAZENECA-2013SE00605

PATIENT
  Age: 3106 Week
  Sex: Male

DRUGS (2)
  1. DIPRIVAN [Suspect]
     Indication: INDUCTION OF ANAESTHESIA
     Route: 042
     Dates: start: 20120918, end: 20120918
  2. CELOCURIN [Suspect]
     Indication: INDUCTION OF ANAESTHESIA
     Route: 042
     Dates: start: 20120918, end: 20120918

REACTIONS (4)
  - Anaphylactic shock [Recovered/Resolved]
  - Airway complication of anaesthesia [Recovered/Resolved]
  - Dermatitis exfoliative [Recovered/Resolved]
  - Drug hypersensitivity [Unknown]
